FAERS Safety Report 20705787 (Version 1)
Quarter: 2022Q2

REPORT INFORMATION
  Report Type: Spontaneous
  Country: US (occurrence: None)
  Receive Date: 20220412
  Receipt Date: 20220412
  Transmission Date: 20220721
  Serious: Yes (Life-Threatening)
  Sender: FDA-Public Use
  Company Number: None

PATIENT

DRUGS (1)
  1. REMICADE [Suspect]
     Active Substance: INFLIXIMAB

REACTIONS (6)
  - Flushing [None]
  - Nausea [None]
  - Chest discomfort [None]
  - Dyspnoea [None]
  - Hyperhidrosis [None]
  - Oxygen saturation decreased [None]

NARRATIVE: CASE EVENT DATE: 20220412
